FAERS Safety Report 9205074 (Version 1)
Quarter: 2013Q2

REPORT INFORMATION
  Report Type: Spontaneous
  Country: US (occurrence: None)
  Receive Date: 20130401
  Receipt Date: 20130401
  Transmission Date: 20140414
  Serious: Yes (Other)
  Sender: FDA-Public Use
  Company Number: None

PATIENT
  Age: 29 Year
  Sex: Female
  Weight: 60.33 kg

DRUGS (1)
  1. MIRENA [Suspect]
     Indication: CONTRACEPTION
     Dosage: 1 DOSE 5 YEARS
     Dates: start: 20120501, end: 20130329

REACTIONS (4)
  - Vaginal haemorrhage [None]
  - Muscle spasms [None]
  - Vaginitis bacterial [None]
  - Vaginal discharge [None]
